FAERS Safety Report 4850334-1 (Version None)
Quarter: 2005Q4

REPORT INFORMATION
  Report Type: 
  Country: None (occurrence: None)
  Receive Date: 20051207
  Receipt Date: 20051207
  Transmission Date: 20060501
  Serious: Yes (Hospitalization)
  Sender: FDA-Public Use
  Company Number: None

PATIENT
  Age: 66 Year
  Sex: Male

DRUGS (5)
  1. MORPHINE SULFATE [Suspect]
     Indication: PAIN
     Dosage: 60 2 TS BID
  2. MORPHINE SULFATE [Suspect]
     Indication: PULMONARY EMBOLISM
     Dosage: 10 MG Q 4HOURS PRN
  3. AMITRIPTYLINE HCL [Concomitant]
  4. CLONAZEPAM [Concomitant]
  5. SINEMET [Concomitant]

REACTIONS (4)
  - COORDINATION ABNORMAL [None]
  - DYSPNOEA [None]
  - LETHARGY [None]
  - SOMNOLENCE [None]
